FAERS Safety Report 12868802 (Version 2)
Quarter: 2017Q1

REPORT INFORMATION
  Report Type: Report from Study
  Country: US (occurrence: US)
  Receive Date: 20161020
  Receipt Date: 20170124
  Transmission Date: 20170428
  Serious: No
  Sender: FDA-Public Use
  Company Number: US-AMGEN-USASL2016098628

PATIENT
  Age: 68 Year

DRUGS (1)
  1. REPATHA [Suspect]
     Active Substance: EVOLOCUMAB
     Indication: BLOOD CHOLESTEROL ABNORMAL
     Dosage: 140 MG, TWO TIMES A MONTH
     Route: 065

REACTIONS (4)
  - Dysgeusia [Unknown]
  - Fear of injection [Unknown]
  - Injection site erythema [Unknown]
  - Injection site pain [Unknown]
